FAERS Safety Report 9482094 (Version 4)
Quarter: 2014Q2

REPORT INFORMATION
  Report Type: Report from Study
  Country: BR (occurrence: BR)
  Receive Date: 20130828
  Receipt Date: 20140506
  Transmission Date: 20141212
  Serious: Yes (Hospitalization, Other)
  Sender: FDA-Public Use
  Company Number: PHHY2013BR092157

PATIENT
  Sex: Female
  Weight: 84 kg

DRUGS (3)
  1. SANDOSTATIN LAR [Suspect]
     Indication: ACROMEGALY
     Dosage: 1 DF, EACH 28 DAYS
     Route: 030
     Dates: start: 2006
  2. DOSTINEX [Concomitant]
     Indication: ACROMEGALY
     Dosage: 1 DF, DAILY
     Route: 048
  3. SYNTHROID [Concomitant]
     Indication: HYPOTHYROIDISM
     Dosage: 1 DF, DAILY
     Route: 048

REACTIONS (4)
  - Gastrointestinal inflammation [Recovered/Resolved]
  - Gastrointestinal carcinoma [Recovered/Resolved]
  - Second primary malignancy [Recovered/Resolved]
  - Neoplasm recurrence [Recovered/Resolved]
